FAERS Safety Report 10977264 (Version 1)
Quarter: 2015Q1

REPORT INFORMATION
  Report Type: Spontaneous
  Country: TR (occurrence: None)
  Receive Date: 20150330
  Receipt Date: 20150330
  Transmission Date: 20150721
  Serious: Yes (Hospitalization, Other)
  Sender: FDA-Public Use
  Company Number: ADR-2015-00602

PATIENT
  Age: 61 Year
  Sex: Female

DRUGS (5)
  1. CIPROFLOXACIN. [Suspect]
     Active Substance: CIPROFLOXACIN
     Indication: PYREXIA
  2. CIPROFLOXACIN. [Suspect]
     Active Substance: CIPROFLOXACIN
     Indication: DIARRHOEA
  3. HEPARIN [Suspect]
     Active Substance: HEPARIN SODIUM
  4. LEVODOPA [Suspect]
     Active Substance: LEVODOPA
  5. BACLOFEN. [Suspect]
     Active Substance: BACLOFEN
     Indication: PARKINSON^S DISEASE

REACTIONS (20)
  - Breath sounds abnormal [None]
  - Thrombocytopenia [None]
  - White blood cell count increased [None]
  - Petechiae [None]
  - Haemolysis [None]
  - Nausea [None]
  - Tachycardia [None]
  - Tachypnoea [None]
  - Pyrexia [None]
  - Purpura [None]
  - Sepsis [None]
  - Abdominal pain [None]
  - Disseminated intravascular coagulation [None]
  - Vomiting [None]
  - Loss of consciousness [None]
  - General physical health deterioration [None]
  - Hepatitis [None]
  - Rales [None]
  - Hypoxia [None]
  - No therapeutic response [None]

NARRATIVE: CASE EVENT DATE: 20140228
